FAERS Safety Report 5006980-8 (Version None)
Quarter: 2006Q2

REPORT INFORMATION
  Report Type: 
  Country: None (occurrence: None)
  Receive Date: 20060517
  Receipt Date: 20060428
  Transmission Date: 20061013
  Serious: Yes (Hospitalization)
  Sender: FDA-Public Use
  Company Number: 2006058716

PATIENT
  Age: 64 Year
  Sex: Male
  Weight: 90.7194 kg

DRUGS (1)
  1. CELEBREX [Suspect]
     Indication: NECK PAIN
     Dosage: 2 IN 1 D
     Dates: start: 20030901

REACTIONS (2)
  - CAROTID ARTERY DISEASE [None]
  - CORONARY ARTERY DISEASE [None]
